FAERS Safety Report 9016408 (Version 2)
Quarter: 2013Q1

REPORT INFORMATION
  Report Type: Spontaneous
  Country: US (occurrence: US)
  Receive Date: 20130116
  Receipt Date: 20130131
  Transmission Date: 20140127
  Serious: Yes (Hospitalization)
  Sender: FDA-Public Use
  Company Number: US-GLAXOSMITHKLINE-A0897703A

PATIENT
  Age: 66 Year
  Sex: Male
  Weight: 66.4 kg

DRUGS (1)
  1. AVANDIA [Suspect]
     Indication: TYPE 2 DIABETES MELLITUS
     Dosage: 4MG TWICE PER DAY
     Route: 048
     Dates: start: 20020708, end: 20071230

REACTIONS (6)
  - Myocardial infarction [Recovering/Resolving]
  - Cardiac failure congestive [Unknown]
  - Liver injury [Unknown]
  - Coronary artery disease [Unknown]
  - Dyspnoea [Unknown]
  - Hyperlipidaemia [Unknown]
